FAERS Safety Report 8941995 (Version 1)
Quarter: 2012Q4

REPORT INFORMATION
  Report Type: 
  Country: US (occurrence: US)
  Receive Date: 20121203
  Receipt Date: 20121203
  Transmission Date: 20130627
  Serious: No
  Sender: FDA-Public Use
  Company Number: US-PFIZER INC-2012298041

PATIENT
  Sex: Female

DRUGS (2)
  1. DIFLUCAN [Suspect]
     Indication: YEAST INFECTION
     Dosage: UNK, monthly
     Route: 048
     Dates: start: 2012
  2. DIFLUCAN [Suspect]
     Dosage: UNK, monthly
     Route: 048
     Dates: start: 201210, end: 201211

REACTIONS (2)
  - Rash [Recovered/Resolved with Sequelae]
  - Scar [Not Recovered/Not Resolved]
